FAERS Safety Report 8271438-X (Version None)
Quarter: 2012Q2

REPORT INFORMATION
  Report Type: 
  Country: None (occurrence: None)
  Receive Date: 20120410
  Receipt Date: 20120405
  Transmission Date: 20120825
  Serious: Yes (Hospitalization)
  Sender: FDA-Public Use
  Company Number: PHEH2012US006716

PATIENT
  Sex: Female

DRUGS (6)
  1. LISINOPRIL [Concomitant]
     Dosage: 20 MG, UNK
  2. LORAZEPAM [Concomitant]
     Dosage: 2 MG, UNK
  3. GILENYA [Suspect]
     Indication: MULTIPLE SCLEROSIS
     Dosage: 0.5 MG, QD
     Route: 048
  4. PANTOPRAZOLE [Concomitant]
     Dosage: 4 MG, UNK
  5. METOPROLOL TARTRATE [Concomitant]
     Dosage: 50 MG, UNK
  6. PRAZODONE [Concomitant]
     Dosage: 50 MG, UNK

REACTIONS (6)
  - PALPITATIONS [None]
  - STRESS [None]
  - BRADYCARDIA [None]
  - PANIC ATTACK [None]
  - BLOOD PRESSURE INCREASED [None]
  - BLOOD POTASSIUM DECREASED [None]
